FAERS Safety Report 20696825 (Version 1)
Quarter: 2022Q2

REPORT INFORMATION
  Report Type: Spontaneous
  Country: DE (occurrence: DE)
  Receive Date: 20220411
  Receipt Date: 20220411
  Transmission Date: 20220721
  Serious: Yes (Other)
  Sender: FDA-Public Use
  Company Number: DE-AMGEN-DEUSP2022059119

PATIENT
  Age: 37 Year
  Sex: Female
  Weight: 61 kg

DRUGS (17)
  1. XGEVA [Suspect]
     Active Substance: DENOSUMAB
     Indication: Metastases to bone
     Dosage: UNK
     Route: 065
  2. PACLITAXEL [Concomitant]
     Active Substance: PACLITAXEL
     Dosage: 80 MG/M2
     Dates: start: 20130221, end: 20130221
  3. PACLITAXEL [Concomitant]
     Active Substance: PACLITAXEL
     Dosage: 80 MG/M2
     Dates: start: 20130305, end: 20130305
  4. PACLITAXEL [Concomitant]
     Active Substance: PACLITAXEL
     Dosage: 80 MG/M2
     Dates: start: 20130319, end: 20130319
  5. PACLITAXEL [Concomitant]
     Active Substance: PACLITAXEL
     Dosage: 80 MG/M2
     Dates: start: 20130403, end: 20130403
  6. PACLITAXEL [Concomitant]
     Active Substance: PACLITAXEL
     Dosage: 80 MG/M2
     Dates: start: 20130409, end: 20130409
  7. PACLITAXEL [Concomitant]
     Active Substance: PACLITAXEL
     Dosage: 80 MG/M2
     Dates: start: 20130416, end: 20130416
  8. PACLITAXEL [Concomitant]
     Active Substance: PACLITAXEL
     Dosage: 80 MG/M2
     Dates: start: 20130507, end: 20130507
  9. CYMBALTA [Concomitant]
     Active Substance: DULOXETINE HYDROCHLORIDE
     Indication: Prophylaxis
     Dosage: 30 MILLIGRAM
  10. FENTANYL [Concomitant]
     Active Substance: FENTANYL
     Indication: Pain
     Dosage: 100 MICROGRAM
  11. GRANULOCYTE COLONY-STIMULATING FACTOR NOS [Concomitant]
     Active Substance: GRANULOCYTE COLONY-STIMULATING FACTOR NOS
     Indication: Adverse event
     Dosage: 6 MILLIGRAM
     Dates: start: 20130224, end: 20130224
  12. LYRICA [Concomitant]
     Active Substance: PREGABALIN
     Indication: Pain
     Dosage: 200 MILLIGRAM
  13. MIRTAZAPINE [Concomitant]
     Active Substance: MIRTAZAPINE
     Indication: Sleep disorder
     Dosage: 45 MILLIGRAM
  14. ACETAMINOPHEN\CAFFEINE\PROPYPHENAZONE [Concomitant]
     Active Substance: ACETAMINOPHEN\CAFFEINE\PROPYPHENAZONE
     Indication: Pain
     Dosage: UNK
  15. PANTOZOL [Concomitant]
     Active Substance: PANTOPRAZOLE SODIUM
     Indication: Prophylaxis
     Dosage: 20 MILLIGRAM
  16. TAVOR (LORAZEPAM) [Concomitant]
     Active Substance: LORAZEPAM
     Indication: Prophylaxis
     Dosage: UNK
  17. FLUPIRTINE MALEATE [Concomitant]
     Active Substance: FLUPIRTINE MALEATE
     Indication: Pain
     Dosage: UNK

REACTIONS (1)
  - Bone marrow failure [Recovered/Resolved]

NARRATIVE: CASE EVENT DATE: 20130223
